FAERS Safety Report 25347219 (Version 2)
Quarter: 2025Q3

REPORT INFORMATION
  Report Type: Spontaneous
  Country: EG (occurrence: EG)
  Receive Date: 20250522
  Receipt Date: 20250728
  Transmission Date: 20251020
  Serious: Yes (Other)
  Sender: BAYER HEALTHCARE PHARMACEUTICALS INC.
  Company Number: EG-BAYER-2025A065695

PATIENT
  Sex: Female

DRUGS (2)
  1. NEXAVAR [Suspect]
     Active Substance: SORAFENIB
  2. NEXAVAR [Suspect]
     Active Substance: SORAFENIB

REACTIONS (3)
  - Neoplasm progression [None]
  - Drug ineffective [None]
  - Suspected counterfeit product [None]
